FAERS Safety Report 9270268 (Version 2)
Quarter: 2013Q2

REPORT INFORMATION
  Report Type: Spontaneous
  Country: JP (occurrence: JP)
  Receive Date: 20130503
  Receipt Date: 20130521
  Transmission Date: 20140414
  Serious: Yes (Other)
  Sender: FDA-Public Use
  Company Number: JP-BRISTOL-MYERS SQUIBB COMPANY-18849828

PATIENT
  Age: 68 Year
  Sex: Male

DRUGS (4)
  1. METGLUCO [Suspect]
     Indication: DIABETES MELLITUS
     Route: 048
     Dates: start: 201110, end: 20130413
  2. JANUVIA [Suspect]
     Route: 048
     Dates: start: 20130413
  3. ADALAT [Suspect]
     Route: 048
     Dates: start: 20130420
  4. POLYCARBOPHIL CALCIUM [Suspect]
     Route: 048
     Dates: start: 20130420

REACTIONS (1)
  - Rhabdomyolysis [Not Recovered/Not Resolved]
